FAERS Safety Report 16079511 (Version 3)
Quarter: 2019Q4

REPORT INFORMATION
  Report Type: Spontaneous
  Country: US (occurrence: US)
  Receive Date: 20190315
  Receipt Date: 20191119
  Transmission Date: 20200122
  Serious: Yes (Other)
  Sender: FDA-Public Use
  Company Number: US-ASTRAZENECA-2018SF26998

PATIENT
  Sex: Male

DRUGS (16)
  1. NEXIUM [Suspect]
     Active Substance: ESOMEPRAZOLE MAGNESIUM
     Route: 048
     Dates: start: 2007, end: 2011
  2. NEXIUM 24HR [Suspect]
     Active Substance: ESOMEPRAZOLE MAGNESIUM
     Route: 048
     Dates: start: 2007, end: 2011
  3. PREVACID 24 HR [Suspect]
     Active Substance: LANSOPRAZOLE
     Route: 065
     Dates: start: 2007, end: 2011
  4. FUROSEMIDE. [Concomitant]
     Active Substance: FUROSEMIDE
  5. DEXILANT [Suspect]
     Active Substance: DEXLANSOPRAZOLE
     Route: 065
     Dates: start: 2007, end: 2011
  6. CLONIDINE. [Concomitant]
     Active Substance: CLONIDINE
  7. PREVACID [Suspect]
     Active Substance: LANSOPRAZOLE
     Route: 065
     Dates: start: 2007, end: 2011
  8. PREVACID [Suspect]
     Active Substance: LANSOPRAZOLE
     Route: 065
     Dates: start: 20061102
  9. SIMVASTATIN. [Concomitant]
     Active Substance: SIMVASTATIN
  10. DILTIAZEM. [Concomitant]
     Active Substance: DILTIAZEM
  11. LANTUS [Concomitant]
     Active Substance: INSULIN GLARGINE
  12. PRILOSEC [Suspect]
     Active Substance: OMEPRAZOLE MAGNESIUM
     Indication: GASTROOESOPHAGEAL REFLUX DISEASE
     Route: 048
     Dates: start: 2007, end: 2011
  13. PRILOSEC OTC [Suspect]
     Active Substance: OMEPRAZOLE MAGNESIUM
     Route: 048
     Dates: start: 2007, end: 2011
  14. COREG [Concomitant]
     Active Substance: CARVEDILOL
  15. PROTONIX [Suspect]
     Active Substance: PANTOPRAZOLE SODIUM
     Route: 065
     Dates: start: 2007, end: 2011
  16. AVANDIA [Concomitant]
     Active Substance: ROSIGLITAZONE MALEATE

REACTIONS (2)
  - End stage renal disease [Unknown]
  - Renal injury [Unknown]
